FAERS Safety Report 15720950 (Version 1)
Quarter: 2018Q4

REPORT INFORMATION
  Report Type: Spontaneous
  Country: ES (occurrence: ES)
  Receive Date: 20181214
  Receipt Date: 20181214
  Transmission Date: 20190205
  Serious: Yes (Other)
  Sender: FDA-Public Use
  Company Number: ES-TEVA-2018-ES-985403

PATIENT
  Age: 52 Year
  Sex: Female
  Weight: 79 kg

DRUGS (1)
  1. DOCETAXEL (7394A) [Suspect]
     Active Substance: DOCETAXEL
     Route: 042
     Dates: start: 20181026, end: 20181115

REACTIONS (1)
  - Infusion related reaction [Recovered/Resolved]

NARRATIVE: CASE EVENT DATE: 20181105
